FAERS Safety Report 18060103 (Version 4)
Quarter: 2022Q1

REPORT INFORMATION
  Report Type: Report from Study
  Country: US (occurrence: US)
  Receive Date: 20200723
  Receipt Date: 20220217
  Transmission Date: 20220424
  Serious: Yes (Hospitalization)
  Sender: FDA-Public Use
  Company Number: NVSC2020US172428

PATIENT
  Age: 14 Year
  Sex: Male

DRUGS (17)
  1. RUXOLITINIB [Suspect]
     Active Substance: RUXOLITINIB
     Indication: Acute lymphocytic leukaemia
     Dosage: 100 MG, BID (DAYS 1-14, 29-42)
     Route: 048
     Dates: start: 20200409
  2. METHOTREXATE [Suspect]
     Active Substance: METHOTREXATE
     Indication: Acute lymphocytic leukaemia
     Dosage: 15 MILLIGRAM (DAYS 1, 8, 15, 22)
     Route: 037
     Dates: start: 20200409
  3. METHOTREXATE [Suspect]
     Active Substance: METHOTREXATE
     Dosage: 12230 MILLIGRAM (DAY 1)
     Route: 042
     Dates: start: 20200701
  4. ASPARAGINASE [Suspect]
     Active Substance: ASPARAGINASE
     Indication: Acute lymphocytic leukaemia
     Dosage: 60000 INTERNATIONAL UNIT (DAY 47)
     Route: 030
     Dates: start: 20200608
  5. CYCLOPHOSPHAMIDE [Suspect]
     Active Substance: CYCLOPHOSPHAMIDE
     Indication: Acute lymphocytic leukaemia
     Dosage: 2400 MILLIGRAM (DAYS 1, 29)
     Route: 042
     Dates: start: 20200409
  6. CYTARABINE [Suspect]
     Active Substance: CYTARABINE
     Indication: Acute lymphocytic leukaemia
     Dosage: 180 MILLIGRAM, (DAYS 1-4, 8-11, 29-32)
     Route: 042
     Dates: start: 20200409
  7. MERCAPTOPURINE [Suspect]
     Active Substance: MERCAPTOPURINE
     Indication: Acute lymphocytic leukaemia
     Dosage: 50 MILLIGRAM (DAYS 1-4)
     Route: 048
     Dates: start: 20200701
  8. MERCAPTOPURINE [Suspect]
     Active Substance: MERCAPTOPURINE
     Dosage: 150 MILLIGRAM (DAYS 1-14, 29-42)
     Route: 048
     Dates: start: 20200409
  9. VINCRISTINE [Suspect]
     Active Substance: VINCRISTINE
     Indication: Acute lymphocytic leukaemia
     Dosage: 2 MILLIGRAM (DAYS 15, 22, 43, 50)
     Route: 042
     Dates: start: 20200701
  10. VINCRISTINE [Suspect]
     Active Substance: VINCRISTINE
     Dosage: 2 MILLIGRAM (DAYS 15, 22, 43, 50)
     Route: 042
     Dates: start: 20200423
  11. PEGASPARGASE [Suspect]
     Active Substance: PEGASPARGASE
     Indication: Acute lymphocytic leukaemia
     Dosage: 300 INTERNATIONAL UNIT (DAY 15)
     Route: 042
     Dates: start: 20200423
  12. LEUCOVORIN [Suspect]
     Active Substance: LEUCOVORIN
     Indication: Acute lymphocytic leukaemia
     Dosage: 37.5 MILLIGRAM, Q6H (DAYS 3-4)
     Route: 048
     Dates: start: 20200703
  13. OMEGA 3 [Concomitant]
     Active Substance: CAPSAICIN
     Indication: Toxicity to various agents
     Dosage: 2000 MG, BID
     Route: 048
     Dates: start: 20200529
  14. OMEGA 3 [Concomitant]
     Active Substance: CAPSAICIN
     Indication: Hypertriglyceridaemia
  15. ONDANSETRON [Concomitant]
     Active Substance: ONDANSETRON
     Indication: Antiemetic supportive care
     Dosage: 8 MILLIGRAM, Q4H, PRN
     Route: 048
     Dates: start: 20200605, end: 20200617
  16. GEMFIBROZIL [Concomitant]
     Active Substance: GEMFIBROZIL
     Indication: Toxicity to various agents
     Dosage: 600 MILLIGRAM, BID
     Route: 048
     Dates: start: 20200605, end: 20200713
  17. GEMFIBROZIL [Concomitant]
     Active Substance: GEMFIBROZIL
     Indication: Hypertriglyceridaemia

REACTIONS (2)
  - Toxicity to various agents [Recovered/Resolved]
  - Drug clearance decreased [Recovered/Resolved]

NARRATIVE: CASE EVENT DATE: 20200609
